FAERS Safety Report 11565075 (Version 1)
Quarter: 2015Q3

REPORT INFORMATION
  Report Type: Spontaneous
  Country: US (occurrence: US)
  Receive Date: 20150916
  Receipt Date: 20150916
  Transmission Date: 20151125
  Serious: No
  Sender: FDA-Public Use
  Company Number: US-ELI_LILLY_AND_COMPANY-US200904002321

PATIENT
  Sex: Female

DRUGS (3)
  1. FORTEO [Suspect]
     Active Substance: TERIPARATIDE
     Indication: SPINAL FRACTURE
     Dates: start: 200903, end: 20090326
  2. THYROID [Concomitant]
     Active Substance: LEVOTHYROXINE\LIOTHYRONINE
  3. FORTEO [Suspect]
     Active Substance: TERIPARATIDE
     Dates: start: 20090409

REACTIONS (8)
  - Pain in extremity [Recovered/Resolved]
  - Nasopharyngitis [Unknown]
  - Abasia [Recovered/Resolved]
  - Spinal disorder [Recovered/Resolved]
  - Rhinorrhoea [Unknown]
  - Crying [Recovered/Resolved]
  - Myalgia [Unknown]
  - Gait disturbance [Unknown]

NARRATIVE: CASE EVENT DATE: 2009
